FAERS Safety Report 7494832-3 (Version None)
Quarter: 2011Q2

REPORT INFORMATION
  Report Type: 
  Country: None (occurrence: None)
  Receive Date: 20110520
  Receipt Date: 20110516
  Transmission Date: 20111010
  Serious: Yes (Death, Hospitalization)
  Sender: FDA-Public Use
  Company Number: B0713771A

PATIENT
  Sex: Female
  Weight: 43 kg

DRUGS (10)
  1. MAGNESIUM SULFATE [Suspect]
     Indication: CONSTIPATION
     Route: 048
  2. DUROTEP [Concomitant]
     Indication: CANCER PAIN
     Route: 062
     Dates: start: 20100421
  3. UNKNOWN DRUG [Concomitant]
     Indication: NAUSEA
     Route: 048
  4. FAMOTIDINE [Concomitant]
     Indication: GASTRITIS
     Route: 048
  5. TYKERB [Suspect]
     Indication: BREAST CANCER
     Dosage: 1250MG PER DAY
     Route: 048
     Dates: start: 20100415, end: 20100816
  6. OXYCONTIN [Concomitant]
     Indication: CANCER PAIN
     Route: 048
     Dates: end: 20100425
  7. XELODA [Concomitant]
     Dosage: 3000MG PER DAY
     Route: 048
     Dates: start: 20100415, end: 20100804
  8. METHYCOBAL [Concomitant]
     Indication: NEUROPATHY PERIPHERAL
     Route: 048
  9. OXINORM [Concomitant]
     Indication: CANCER PAIN
     Route: 048
  10. GLYCYRON [Concomitant]
     Indication: ASPARTATE AMINOTRANSFERASE INCREASED
     Route: 048

REACTIONS (2)
  - JAUNDICE [None]
  - MALAISE [None]
